FAERS Safety Report 9308101 (Version 2)
Quarter: 2013Q3

REPORT INFORMATION
  Report Type: Spontaneous
  Country: US (occurrence: US)
  Receive Date: 20130524
  Receipt Date: 20130815
  Transmission Date: 20140515
  Serious: Yes (Other)
  Sender: FDA-Public Use
  Company Number: US-PFIZER INC-2013154479

PATIENT
  Age: 36 Month
  Sex: 0

DRUGS (1)
  1. BENEFIX [Suspect]
     Dosage: UNK

REACTIONS (1)
  - Cough [Unknown]
